FAERS Safety Report 7826994-X (Version None)
Quarter: 2011Q4

REPORT INFORMATION
  Report Type: 
  Country: None (occurrence: None)
  Receive Date: 20111019
  Receipt Date: 20111019
  Transmission Date: 20120403
  Serious: Yes (Disabling, Other)
  Sender: FDA-Public Use
  Company Number: None

PATIENT
  Sex: Female
  Weight: 69.8539 kg

DRUGS (1)
  1. FOSAMAX [Suspect]
     Indication: TOOTH LOSS
     Dosage: 1 TABLET 1X DAY ORALLY APPROX. 8-9 YEARS OF USE
     Route: 048

REACTIONS (3)
  - PAIN IN JAW [None]
  - TOOTH LOSS [None]
  - MASTICATION DISORDER [None]
